FAERS Safety Report 21622231 (Version 1)
Quarter: 2022Q4

REPORT INFORMATION
  Report Type: Spontaneous
  Country: US (occurrence: None)
  Receive Date: 20221121
  Receipt Date: 20221121
  Transmission Date: 20230112
  Serious: Yes (Hospitalization)
  Sender: FDA-Public Use
  Company Number: 2022A375873

PATIENT
  Sex: Female
  Weight: 72.6 kg

DRUGS (1)
  1. BUDESONIDE\FORMOTEROL\GLYCOPYRRONIUM [Suspect]
     Active Substance: BUDESONIDE\FORMOTEROL\GLYCOPYRRONIUM
     Dosage: 160/9/4.8 MCG, 2 INHALATIONS 2 TIMES A DAY,
     Route: 055
     Dates: start: 202202

REACTIONS (7)
  - Dyspnoea [Unknown]
  - Illness [Unknown]
  - Weight decreased [Unknown]
  - Drug dose omission by device [Unknown]
  - Breath sounds abnormal [Unknown]
  - Body height decreased [Unknown]
  - Device malfunction [Unknown]
